FAERS Safety Report 12937357 (Version 1)
Quarter: 2016Q4

REPORT INFORMATION
  Report Type: Spontaneous
  Country: US (occurrence: US)
  Receive Date: 20161114
  Receipt Date: 20161114
  Transmission Date: 20170207
  Serious: Yes (Other)
  Sender: FDA-Public Use
  Company Number: US-PFIZER INC-3177447

PATIENT
  Age: 57 Year
  Sex: Male
  Weight: 104.3 kg

DRUGS (3)
  1. DILAUDID [Concomitant]
     Active Substance: HYDROMORPHONE HYDROCHLORIDE
     Indication: PAIN
     Dosage: 1 MG, ONCE
     Route: 040
     Dates: start: 20160202, end: 20160202
  2. DIAZEPAM. [Suspect]
     Active Substance: DIAZEPAM
     Indication: ANXIETY
     Dosage: 5 MG, ONCE
     Route: 040
     Dates: start: 20160202, end: 20160202
  3. DILAUDID [Concomitant]
     Active Substance: HYDROMORPHONE HYDROCHLORIDE
     Dosage: 2 MG, ONCE
     Route: 040
     Dates: start: 20160202, end: 20160202

REACTIONS (4)
  - Blood pressure decreased [Recovered/Resolved]
  - Cardiac arrest [Recovered/Resolved]
  - Heart rate decreased [Recovered/Resolved]
  - Oxygen saturation decreased [Recovered/Resolved]

NARRATIVE: CASE EVENT DATE: 20160202
